FAERS Safety Report 24771391 (Version 2)
Quarter: 2025Q1

REPORT INFORMATION
  Report Type: Spontaneous
  Country: US (occurrence: US)
  Receive Date: 20241224
  Receipt Date: 20250226
  Transmission Date: 20250409
  Serious: Yes (Hospitalization)
  Sender: RADIUS PHARM
  Company Number: US-RADIUS HEALTH INC.-2024US010399

PATIENT

DRUGS (9)
  1. TYMLOS [Suspect]
     Active Substance: ABALOPARATIDE
     Indication: Senile osteoporosis
     Route: 058
     Dates: start: 20240920
  2. BORON CITRATE [Concomitant]
     Indication: Product used for unknown indication
  3. CALCIUM\VITAMIN D [Concomitant]
     Active Substance: CALCIUM\VITAMIN D
     Indication: Product used for unknown indication
  4. COLLAGEN ULTRA [Concomitant]
     Indication: Product used for unknown indication
  5. COENZYME Q10 [Concomitant]
     Active Substance: DIETARY SUPPLEMENT\UBIDECARENONE
     Indication: Product used for unknown indication
  6. IMITREX [Concomitant]
     Active Substance: SUMATRIPTAN SUCCINATE
     Indication: Product used for unknown indication
  7. MAGNESIUM [Concomitant]
     Active Substance: MAGNESIUM
     Indication: Product used for unknown indication
  8. ADULT MULTIVITAMIN [Concomitant]
     Indication: Product used for unknown indication
  9. VITAMIN D3 [Concomitant]
     Active Substance: CHOLECALCIFEROL
     Indication: Product used for unknown indication

REACTIONS (5)
  - Patella fracture [Unknown]
  - Spinal fracture [Unknown]
  - Loss of personal independence in daily activities [Unknown]
  - Intentional dose omission [Unknown]
  - Fatigue [Not Recovered/Not Resolved]

NARRATIVE: CASE EVENT DATE: 20240101
